FAERS Safety Report 21453366 (Version 2)
Quarter: 2022Q4

REPORT INFORMATION
  Report Type: Spontaneous
  Country: CH (occurrence: CH)
  Receive Date: 20221013
  Receipt Date: 20221019
  Transmission Date: 20230112
  Serious: Yes (Hospitalization, Other)
  Sender: FDA-Public Use
  Company Number: None

PATIENT
  Age: 21 Year
  Sex: Male
  Weight: 116 kg

DRUGS (43)
  1. CLINDAMYCIN [Suspect]
     Active Substance: CLINDAMYCIN
     Dosage: 900 MG, 3X/DAY (EVERY 8H)
     Route: 041
     Dates: start: 20220628, end: 20220702
  2. CRESEMBA [Suspect]
     Active Substance: ISAVUCONAZONIUM SULFATE
     Dosage: 200 MG,1 IN 1 D
     Route: 048
     Dates: start: 20220615, end: 20220711
  3. HEPARIN [Suspect]
     Active Substance: HEPARIN SODIUM
     Indication: Embolism venous
     Dosage: THERAPEUTIC DOSAGE
     Route: 041
     Dates: start: 20220606, end: 20220706
  4. HEPARIN [Suspect]
     Active Substance: HEPARIN SODIUM
     Dosage: HIGH PROPHYLACTIC DOSAGE
     Route: 041
     Dates: start: 20220714, end: 20220812
  5. ASPARAGINASE [Suspect]
     Active Substance: ASPARAGINASE
     Indication: Acute myeloid leukaemia
     Dosage: 14850 IU
     Route: 041
     Dates: start: 20220621, end: 20220621
  6. ASPARAGINASE [Suspect]
     Active Substance: ASPARAGINASE
     Dosage: 14850 IU
     Route: 041
     Dates: start: 20220623, end: 20220623
  7. ASPARAGINASE [Suspect]
     Active Substance: ASPARAGINASE
     Dosage: 14850 IU
     Route: 041
     Dates: start: 20220626, end: 20220626
  8. CYCLOPHOSPHAMIDE [Suspect]
     Active Substance: CYCLOPHOSPHAMIDE
     Indication: Acute myeloid leukaemia
     Dosage: 1860 MG, CYCLIC
     Route: 042
     Dates: start: 20220614, end: 20220614
  9. CYCLOPHOSPHAMIDE [Suspect]
     Active Substance: CYCLOPHOSPHAMIDE
     Dosage: 1860 MG, CYCLIC
     Route: 042
     Dates: start: 20220614, end: 20220614
  10. CEFEPIME [Suspect]
     Active Substance: CEFEPIME HYDROCHLORIDE
     Indication: Necrotising fasciitis
     Dosage: 8 GM (2 GM,1 IN 6 HR)
     Route: 042
     Dates: start: 20220626, end: 20220706
  11. AMOXICILLIN\CLAVULANATE POTASSIUM [Concomitant]
     Active Substance: AMOXICILLIN\CLAVULANATE POTASSIUM
     Indication: Necrotising fasciitis
     Dosage: ONE 875 MG/125 MG TABLET EVERY 8 HOURS ORALLY (1 DOSAGE FORMS,1 IN 8 HR)
     Route: 048
     Dates: start: 20220706, end: 20220708
  12. ELIQUIS [Concomitant]
     Active Substance: APIXABAN
     Indication: Embolism venous
     Dosage: 5 MG, 2X/DAY (EVERY 12 H)
     Route: 048
     Dates: start: 20220706, end: 20220708
  13. ELIQUIS [Concomitant]
     Active Substance: APIXABAN
     Dosage: 5 MG, 2X/DAY (EVERY 12H)
     Route: 048
     Dates: start: 20220813
  14. METHOTREXAT TEVA [METHOTREXATE SODIUM] [Concomitant]
     Indication: Acute myeloid leukaemia
     Dosage: 15 MG, CYCLIC
     Route: 037
     Dates: start: 20220614, end: 20220614
  15. METHOTREXAT TEVA [METHOTREXATE SODIUM] [Concomitant]
     Dosage: 15 MG, CYCLIC
     Route: 037
     Dates: start: 20220621, end: 20220621
  16. METHOTREXAT TEVA [METHOTREXATE SODIUM] [Concomitant]
     Dosage: 15 MG, CYCLIC
     Route: 037
     Dates: start: 20220712, end: 20220712
  17. SOLU-MEDROL [Concomitant]
     Active Substance: METHYLPREDNISOLONE SODIUM SUCCINATE
     Indication: Acute myeloid leukaemia
     Dosage: 40 MG, CYCLIC
     Route: 037
     Dates: start: 20220614, end: 20220614
  18. SOLU-MEDROL [Concomitant]
     Active Substance: METHYLPREDNISOLONE SODIUM SUCCINATE
     Dosage: 40 MG, CYCLIC
     Route: 037
     Dates: start: 20220621, end: 20220621
  19. SOLU-MEDROL [Concomitant]
     Active Substance: METHYLPREDNISOLONE SODIUM SUCCINATE
     Dosage: 40 MG, CYCLIC
     Route: 037
     Dates: start: 20220712, end: 20220712
  20. ALLOPURINOL [Concomitant]
     Active Substance: ALLOPURINOL
     Dosage: 300 MG, 1X/DAY (1-0-0)
     Route: 048
     Dates: start: 20220607, end: 20220613
  21. VINCRISTINE [Concomitant]
     Active Substance: VINCRISTINE
     Indication: Acute myeloid leukaemia
     Dosage: 2 MG, CYCLIC
     Route: 042
     Dates: start: 20220614, end: 20220614
  22. VINCRISTINE [Concomitant]
     Active Substance: VINCRISTINE
     Dosage: 2 MG, CYCLIC
     Route: 042
     Dates: start: 20220621, end: 20220621
  23. VINCRISTINE [Concomitant]
     Active Substance: VINCRISTINE
     Dosage: 2 MG, CYCLIC
     Route: 042
     Dates: start: 20220628, end: 20220628
  24. BACTRIM [Concomitant]
     Active Substance: SULFAMETHOXAZOLE\TRIMETHOPRIM
     Dosage: 1 DF, CYCLIC (MON, WED, FRI 1-0-0)
     Route: 048
     Dates: start: 20220610
  25. DAFALGAN [Concomitant]
     Active Substance: ACETAMINOPHEN
     Dosage: 500 MG, AS NEEDED
     Route: 048
     Dates: start: 20220702, end: 20220702
  26. VALTREX [Concomitant]
     Active Substance: VALACYCLOVIR HYDROCHLORIDE
     Dosage: 1-0-1 (500 MG,1 IN 12 HR)
     Route: 048
     Dates: start: 20220606
  27. PANTOZOL [Concomitant]
     Active Substance: PANTOPRAZOLE SODIUM
     Dosage: 40 MG, 1X/DAY (1-0-0)
     Route: 048
     Dates: start: 20220610, end: 20220628
  28. PHYTONADIONE [Concomitant]
     Active Substance: PHYTONADIONE
     Dosage: 10 MG/ML ORALLY/IV SOLUTION 10-0-0-0 MG (1-0-0-0 ML) (10 MG,1 IN 1 D)
     Route: 042
     Dates: start: 20220621, end: 20220706
  29. PREDNISOLONE [Concomitant]
     Active Substance: PREDNISOLONE
     Dosage: 3-0-0-0 (150 MG)
     Route: 048
     Dates: start: 20220614, end: 20220623
  30. AKYNZEO [FOSNETUPITANT CHLORIDE HYDROCHLORIDE;PALONOSETRON HYDROCHLORI [Concomitant]
     Dosage: ONCE ONE ; IN TOTAL (1 DOSAGE FORMS,1 TOTAL)
     Route: 048
     Dates: start: 20220629, end: 20220629
  31. ZYPREXA [Concomitant]
     Active Substance: OLANZAPINE
     Dosage: SINGLE ADMINISTRATION (5 MG)
     Route: 048
     Dates: start: 20220629, end: 20220629
  32. HUMALOG [Concomitant]
     Active Substance: INSULIN LISPRO
     Dosage: 100 IU (SCHEDULE OF FURTHER INJECTIONS, DOSAGE NOT KNOWN) (POST-INJECTION SCHEME)
     Route: 058
     Dates: start: 20220628, end: 20220705
  33. CYTARABINE [Concomitant]
     Active Substance: CYTARABINE
     Indication: Acute myeloid leukaemia
     Dosage: 40 MG, CYCLIC
     Route: 037
     Dates: start: 20220614, end: 20220614
  34. CYTARABINE [Concomitant]
     Active Substance: CYTARABINE
     Dosage: 40 MG, CYCLIC
     Route: 037
     Dates: start: 20220621, end: 20220621
  35. CYTARABINE [Concomitant]
     Active Substance: CYTARABINE
     Dosage: 40 MG, CYCLIC
     Route: 037
     Dates: start: 20220712, end: 20220712
  36. HYDROXYCARBAMID LABATEC [Concomitant]
     Indication: Acute myeloid leukaemia
     Dosage: BETWEEN 3-0-3 AND 5-0-5, I.E. 1500-2500 MG -0- 1500-2500 MG (1500 MG,2 D)
     Route: 048
     Dates: start: 20220607, end: 20220610
  37. CERUBIDINE [Concomitant]
     Active Substance: DAUNORUBICIN HYDROCHLORIDE
     Indication: Acute myeloid leukaemia
     Dosage: 125 MG, CYCLIC
     Route: 042
     Dates: start: 20220614, end: 20220614
  38. CERUBIDINE [Concomitant]
     Active Substance: DAUNORUBICIN HYDROCHLORIDE
     Dosage: 125 MG, CYCLIC
     Route: 042
     Dates: start: 20220615, end: 20220615
  39. CERUBIDINE [Concomitant]
     Active Substance: DAUNORUBICIN HYDROCHLORIDE
     Dosage: 125 MG, CYCLIC
     Route: 042
     Dates: start: 20220616, end: 20220616
  40. CERUBIDINE [Concomitant]
     Active Substance: DAUNORUBICIN HYDROCHLORIDE
     Dosage: 125 MG, CYCLIC
     Route: 042
     Dates: start: 20220628, end: 20220628
  41. ZOLPIDEM [Concomitant]
     Active Substance: ZOLPIDEM TARTRATE
     Dosage: 5 MG (5 MG,1 IN 1 D)
     Route: 042
  42. PARACETAMOL FRESENIUS [Concomitant]
     Dosage: 500 MG,AS REQUIRED
     Route: 041
  43. CEFUROXIME [Concomitant]
     Active Substance: CEFUROXIME
     Indication: Necrotising fasciitis
     Dosage: UNK
     Route: 065
     Dates: start: 20220708, end: 20220713

REACTIONS (1)
  - Drug-induced liver injury [Recovering/Resolving]

NARRATIVE: CASE EVENT DATE: 20220704
